FAERS Safety Report 6022040-1 (Version None)
Quarter: 2008Q4

REPORT INFORMATION
  Report Type: 
  Country: None (occurrence: None)
  Receive Date: 20081229
  Receipt Date: 20081219
  Transmission Date: 20090506
  Serious: Yes (Hospitalization)
  Sender: FDA-Public Use
  Company Number: US-GENENTECH-274319

PATIENT
  Sex: Male
  Weight: 27.3 kg

DRUGS (3)
  1. SOMATROPIN [Suspect]
     Indication: FOETAL GROWTH RETARDATION
     Dosage: 1.5 MG, 7/WEEK
     Route: 058
     Dates: start: 20020416
  2. SOMATROPIN [Suspect]
     Indication: FOETAL ALCOHOL SYNDROME
  3. ADDERALL 10 [Concomitant]
     Indication: DRUG USE FOR UNKNOWN INDICATION

REACTIONS (1)
  - MASTOIDITIS [None]
